FAERS Safety Report 12603635 (Version 1)
Quarter: 2016Q3

REPORT INFORMATION
  Report Type: Report from Study
  Country: CA (occurrence: CA)
  Receive Date: 20160728
  Receipt Date: 20160728
  Transmission Date: 20161109
  Serious: Yes (Death, Congenital Anomaly)
  Sender: FDA-Public Use
  Company Number: CA-JNJFOC-20160718956

PATIENT
  Sex: Male

DRUGS (1)
  1. REMICADE [Suspect]
     Active Substance: INFLIXIMAB
     Indication: COLITIS ULCERATIVE
     Dosage: FATHER^S DOSING
     Route: 064
     Dates: start: 201310

REACTIONS (3)
  - Foetal exposure during pregnancy [Unknown]
  - Ichthyosis [Unknown]
  - Death [Fatal]

NARRATIVE: CASE EVENT DATE: 2016
